FAERS Safety Report 5079491-1 (Version None)
Quarter: 2006Q3

REPORT INFORMATION
  Report Type: 
  Country: None (occurrence: None)
  Receive Date: 20060811
  Receipt Date: 20060811
  Transmission Date: 20061208
  Serious: Yes (Other)
  Sender: FDA-Public Use
  Company Number: None

PATIENT
  Age: 42 Year
  Sex: Female
  Weight: 89.8122 kg

DRUGS (1)
  1. NITROFURANTOIN [Suspect]
     Indication: URINARY TRACT INFECTION
     Dosage: ONE   BID   PO
     Route: 048
     Dates: start: 20060805, end: 20060807

REACTIONS (5)
  - DYSPNOEA [None]
  - HEADACHE [None]
  - MALAISE [None]
  - RASH [None]
  - SERUM SICKNESS [None]
